FAERS Safety Report 20112601 (Version 2)
Quarter: 2021Q4

REPORT INFORMATION
  Report Type: Spontaneous
  Country: US (occurrence: US)
  Receive Date: 20211125
  Receipt Date: 20211202
  Transmission Date: 20220303
  Serious: Yes (Hospitalization)
  Sender: FDA-Public Use
  Company Number: US-CELGENE-USA-20211106018

PATIENT
  Age: 71 Year
  Sex: Female

DRUGS (4)
  1. AZACITIDINE [Suspect]
     Active Substance: AZACITIDINE
     Indication: Myelodysplastic syndrome
     Dosage: 75 MILLIGRAM/SQ.METER
     Route: 041
     Dates: start: 20211108, end: 20211110
  2. AZACITIDINE [Suspect]
     Active Substance: AZACITIDINE
     Dosage: 75 MILLIGRAM/SQ.METER
     Route: 041
     Dates: start: 20211111
  3. ALX-148 [Suspect]
     Active Substance: ALX-148
     Indication: Myelodysplastic syndrome
     Dosage: 60 MILLIGRAM/KILOGRAM
     Route: 065
     Dates: start: 20211108, end: 20211110
  4. ALX-148 [Suspect]
     Active Substance: ALX-148
     Dosage: 60 MILLIGRAM/KILOGRAM
     Route: 065
     Dates: start: 20211111

REACTIONS (1)
  - Pyrexia [Recovered/Resolved]

NARRATIVE: CASE EVENT DATE: 20211110
